FAERS Safety Report 5146176-2 (Version None)
Quarter: 2006Q4

REPORT INFORMATION
  Report Type: 
  Country: None (occurrence: None)
  Receive Date: 20061108
  Receipt Date: 20060127
  Transmission Date: 20070319
  Serious: Yes (Other)
  Sender: FDA-Public Use
  Company Number: US-AVENTIS-200611116US

PATIENT
  Sex: Female
  Weight: 95.45 kg

DRUGS (7)
  1. PENLAC [Suspect]
     Indication: ONYCHOMYCOSIS
     Dosage: DOSE: UNK
     Route: 061
     Dates: start: 20050821, end: 20060201
  2. LIPITOR [Suspect]
     Dosage: DOSE: UNKNOWN
     Dates: end: 20060101
  3. PREVACID [Concomitant]
     Dosage: DOSE: UNK
  4. VICODIN [Concomitant]
     Dosage: DOSE: UNK
  5. AMBIEN [Concomitant]
     Dosage: DOSE: UNK
  6. VITAMIN CAP [Concomitant]
     Dosage: DOSE: UNK
  7. SKELAXIN                           /00611501/ [Concomitant]
     Dosage: DOSE: UNKNOWN

REACTIONS (13)
  - ANOREXIA [None]
  - APHONIA [None]
  - ASTHENIA [None]
  - BLOOD CREATINE PHOSPHOKINASE INCREASED [None]
  - CONDITION AGGRAVATED [None]
  - DERMATOMYOSITIS [None]
  - DRUG INTERACTION [None]
  - FIBROMYALGIA [None]
  - LARYNGITIS [None]
  - LIVER FUNCTION TEST ABNORMAL [None]
  - RASH GENERALISED [None]
  - VOCAL CORD POLYP [None]
  - WEIGHT DECREASED [None]
